FAERS Safety Report 7629643-9 (Version None)
Quarter: 2011Q3

REPORT INFORMATION
  Report Type: 
  Country: None (occurrence: None)
  Receive Date: 20110722
  Receipt Date: 20110707
  Transmission Date: 20111222
  Serious: Yes (Hospitalization)
  Sender: FDA-Public Use
  Company Number: US-ROCHE-786279

PATIENT
  Sex: Female
  Weight: 94.3 kg

DRUGS (9)
  1. RIBAVIRIN [Suspect]
     Route: 048
     Dates: start: 20110519
  2. METFORMIN HCL [Concomitant]
  3. SYNTHROID [Concomitant]
  4. IMODIUM [Concomitant]
     Dosage: DOSE: 2 MG AS REQUIRED
  5. TELAPREVIR [Suspect]
     Route: 048
     Dates: start: 20110519
  6. PEGINTERFERON ALFA-2A [Suspect]
     Dosage: INTERRUPTED
     Route: 058
     Dates: start: 20110519
  7. TRIAMCINOLONE [Concomitant]
     Dosage: AS NECESSARY
  8. LEXAPRO [Concomitant]
  9. ANUSOL [Concomitant]
     Dosage: FREQUENCY: AS NECESSARY.

REACTIONS (8)
  - VIITH NERVE PARALYSIS [None]
  - HEMIPARESIS [None]
  - FALL [None]
  - DISORIENTATION [None]
  - PARAESTHESIA [None]
  - VERTIGO [None]
  - ASTHENIA [None]
  - TRANSIENT ISCHAEMIC ATTACK [None]
